FAERS Safety Report 14173908 (Version 6)
Quarter: 2018Q3

REPORT INFORMATION
  Report Type: Report from Study
  Country: JP (occurrence: JP)
  Receive Date: 20171109
  Receipt Date: 20180907
  Transmission Date: 20181010
  Serious: Yes (Hospitalization)
  Sender: FDA-Public Use
  Company Number: JP-EISAI MEDICAL RESEARCH-EC-2017-032830

PATIENT
  Age: 73 Year
  Sex: Male
  Weight: 67 kg

DRUGS (31)
  1. LENVATINIB [Suspect]
     Active Substance: LENVATINIB
     Route: 048
     Dates: start: 20171030, end: 20171030
  2. URSODEOXYCHOLIC ACID [Concomitant]
     Active Substance: URSODIOL
  3. NALFURAFINE HYDROCHLORIDE [Concomitant]
     Active Substance: NALFURAFINE HYDROCHLORIDE
  4. LAGNOS [Concomitant]
  5. ANTEBATE [Concomitant]
     Active Substance: BETAMETHASONE DIPROPIONATE
  6. QUETIAPINE. [Concomitant]
     Active Substance: QUETIAPINE
  7. LENVATINIB [Suspect]
     Active Substance: LENVATINIB
     Indication: HEPATOCELLULAR CARCINOMA
     Route: 048
     Dates: start: 20171018, end: 20171029
  8. NIFEDIPINE. [Concomitant]
     Active Substance: NIFEDIPINE
  9. SPIRONOLACTONE. [Concomitant]
     Active Substance: SPIRONOLACTONE
  10. ATARAX [Concomitant]
     Active Substance: HYDROXYZINE HYDROCHLORIDE
  11. GENTAMICIN SULFATE. [Concomitant]
     Active Substance: GENTAMICIN SULFATE
  12. TAMSULOSIN HYDROCHLORIDE. [Concomitant]
     Active Substance: TAMSULOSIN HYDROCHLORIDE
  13. DERMOVATE [Concomitant]
     Active Substance: CLOBETASOL
  14. WHITE PETROLATUM [Concomitant]
     Active Substance: PETROLATUM
  15. GLUCOSE [Concomitant]
     Active Substance: DEXTROSE
  16. GLIMICRON [Concomitant]
     Active Substance: GLICLAZIDE
  17. JANUVIA [Concomitant]
     Active Substance: SITAGLIPTIN PHOSPHATE
  18. OLOPATADINE HYDROCHLORIDE. [Concomitant]
     Active Substance: OLOPATADINE HYDROCHLORIDE
  19. LENVATINIB [Suspect]
     Active Substance: LENVATINIB
     Route: 048
     Dates: start: 20171031, end: 20171101
  20. LENVATINIB [Suspect]
     Active Substance: LENVATINIB
     Route: 048
     Dates: start: 20171115, end: 20171225
  21. FEXOFENADINE HYDROCHLORIDE. [Concomitant]
     Active Substance: FEXOFENADINE HYDROCHLORIDE
  22. HEPARINOID [Concomitant]
     Active Substance: CHONDROITIN SULFATE (BOVINE)
  23. LENVATINIB [Suspect]
     Active Substance: LENVATINIB
     Route: 048
     Dates: start: 20171103, end: 20171107
  24. PEMBROLIZUMAB. [Suspect]
     Active Substance: PEMBROLIZUMAB
     Indication: HEPATOCELLULAR CARCINOMA
     Route: 041
     Dates: start: 20171018, end: 20180425
  25. NERISONA [Concomitant]
     Active Substance: DIFLUCORTOLONE VALERATE
  26. LENVATINIB [Suspect]
     Active Substance: LENVATINIB
     Route: 048
     Dates: start: 20180109, end: 20180302
  27. LENVATINIB [Suspect]
     Active Substance: LENVATINIB
     Route: 048
     Dates: start: 20180306, end: 20180426
  28. FAMOTIDINE D [Concomitant]
     Active Substance: FAMOTIDINE
  29. MENTHA OIL [Concomitant]
  30. PICOSULFATE NA [Concomitant]
     Active Substance: SODIUM PICOSULFATE
  31. SOLITA?T NO 1 [Concomitant]

REACTIONS (4)
  - Hydrocele [Recovering/Resolving]
  - White blood cell count decreased [Recovered/Resolved]
  - Hyperammonaemia [Recovering/Resolving]
  - General physical health deterioration [Recovering/Resolving]

NARRATIVE: CASE EVENT DATE: 20171101
